FAERS Safety Report 22603451 (Version 1)
Quarter: 2023Q2

REPORT INFORMATION
  Report Type: Spontaneous
  Country: US (occurrence: US)
  Receive Date: 20230615
  Receipt Date: 20230615
  Transmission Date: 20230722
  Serious: Yes (Other)
  Sender: FDA-Public Use
  Company Number: US-BEH-2023159787

PATIENT
  Sex: Female

DRUGS (15)
  1. HIZENTRA [Suspect]
     Active Substance: HUMAN IMMUNOGLOBULIN G
     Indication: Immunodeficiency
     Dosage: 10 GRAM, QW
     Route: 058
     Dates: start: 20220831
  2. ACETAMINOPHEN [Concomitant]
     Active Substance: ACETAMINOPHEN
  3. ARMOUR THYROID [Concomitant]
     Active Substance: THYROID, PORCINE
  4. CARVEDILOL [Concomitant]
     Active Substance: CARVEDILOL
  5. DOXEPIN HCL [Concomitant]
     Active Substance: DOXEPIN HYDROCHLORIDE
  6. GABAPENTIN [Concomitant]
     Active Substance: GABAPENTIN
  7. HYDROXYZINE PAMOATE [Concomitant]
     Active Substance: HYDROXYZINE PAMOATE
  8. LIDOCAINE [Concomitant]
     Active Substance: LIDOCAINE
  9. MELOXICAM [Concomitant]
     Active Substance: MELOXICAM
  10. MORPHINE SULFATE [Concomitant]
     Active Substance: MORPHINE SULFATE
  11. ACETAMINOPHEN\OXYCODONE HYDROCHLORIDE [Concomitant]
     Active Substance: ACETAMINOPHEN\OXYCODONE HYDROCHLORIDE
  12. OXYCODONE [Concomitant]
     Active Substance: OXYCODONE
  13. PAROXETINE [Concomitant]
     Active Substance: PAROXETINE
  14. SUMATRIPTAN [Concomitant]
     Active Substance: SUMATRIPTAN
  15. TRAZODONE [Concomitant]
     Active Substance: TRAZODONE HYDROCHLORIDE

REACTIONS (2)
  - Drug ineffective [Not Recovered/Not Resolved]
  - Infection [Not Recovered/Not Resolved]
